FAERS Safety Report 8529976-8 (Version None)
Quarter: 2012Q3

REPORT INFORMATION
  Report Type: 
  Country: None (occurrence: None)
  Receive Date: 20120723
  Receipt Date: 20120713
  Transmission Date: 20120928
  Serious: Yes (Hospitalization, Other)
  Sender: FDA-Public Use
  Company Number: PHHY2012JP055152

PATIENT
  Sex: Female
  Weight: 51 kg

DRUGS (5)
  1. YODEL S [Concomitant]
     Route: 048
     Dates: start: 20120416, end: 20120517
  2. EXFORGE [Suspect]
     Indication: HYPERTENSION
     Dosage: 1 DF DAILY
     Route: 048
     Dates: start: 20120416, end: 20120517
  3. METFORMIN HCL [Concomitant]
     Route: 048
     Dates: start: 20120101
  4. EQUA [Suspect]
     Indication: DIABETES MELLITUS
     Dosage: 100 MG, DAILY
     Route: 048
     Dates: start: 20120416, end: 20120517
  5. RABEPRAZOLE SODIUM [Concomitant]
     Route: 048
     Dates: start: 20120416, end: 20120517

REACTIONS (7)
  - NEPHROLITHIASIS [None]
  - FATIGUE [None]
  - UTERINE LEIOMYOMA [None]
  - ALANINE AMINOTRANSFERASE INCREASED [None]
  - DRUG-INDUCED LIVER INJURY [None]
  - BLOOD BILIRUBIN INCREASED [None]
  - JAUNDICE [None]
